FAERS Safety Report 19073272 (Version 1)
Quarter: 2021Q1

REPORT INFORMATION
  Report Type: Spontaneous
  Country: US (occurrence: US)
  Receive Date: 20210330
  Receipt Date: 20210330
  Transmission Date: 20210420
  Serious: Yes (Death)
  Sender: FDA-Public Use
  Company Number: US-PFIZER INC-2021297714

PATIENT
  Age: 74 Year
  Sex: Female

DRUGS (2)
  1. IBRANCE [Suspect]
     Active Substance: PALBOCICLIB
     Indication: BREAST CANCER
     Dosage: 100 MG, CYCLIC (21 DAYS ON AND 7 DAYS OFF)
     Route: 048
  2. IBRANCE [Suspect]
     Active Substance: PALBOCICLIB
     Indication: LOBULAR BREAST CARCINOMA IN SITU

REACTIONS (1)
  - Death [Fatal]

NARRATIVE: CASE EVENT DATE: 20210306
